FAERS Safety Report 25093590 (Version 1)
Quarter: 2025Q1

REPORT INFORMATION
  Report Type: Spontaneous
  Country: US (occurrence: US)
  Receive Date: 20250319
  Receipt Date: 20250319
  Transmission Date: 20250408
  Serious: Yes (Life-Threatening, Hospitalization)
  Sender: ROCHE
  Company Number: US-CHEPLA-2025003241

PATIENT
  Age: 77 Year
  Sex: Female

DRUGS (3)
  1. TRASTUZUMAB [Suspect]
     Active Substance: TRASTUZUMAB
     Indication: Breast cancer stage IV
     Route: 065
     Dates: start: 2023
  2. CAPECITABINE [Suspect]
     Active Substance: CAPECITABINE
     Indication: Breast cancer stage IV
     Route: 065
     Dates: start: 2023
  3. CAPECITABINE [Suspect]
     Active Substance: CAPECITABINE
     Route: 065

REACTIONS (4)
  - Stress cardiomyopathy [Recovering/Resolving]
  - Left ventricular dysfunction [Recovered/Resolved]
  - Ejection fraction decreased [Recovered/Resolved]
  - Ischaemic stroke [Recovering/Resolving]

NARRATIVE: CASE EVENT DATE: 20240317
